FAERS Safety Report 18775349 (Version 2)
Quarter: 2021Q1

REPORT INFORMATION
  Report Type: Report from Study
  Country: JP (occurrence: JP)
  Receive Date: 20210122
  Receipt Date: 20210126
  Transmission Date: 20210419
  Serious: Yes (Hospitalization)
  Sender: FDA-Public Use
  Company Number: JP-ROCHE-2754328

PATIENT
  Age: 58 Year
  Sex: Male
  Weight: 76 kg

DRUGS (20)
  1. AZILVA [Concomitant]
     Active Substance: AZILSARTAN KAMEDOXOMIL
     Indication: HYPERTENSION
     Route: 048
  2. CARBOPLATIN. [Suspect]
     Active Substance: CARBOPLATIN
     Dosage: AUC5?MOST RECENT DOSE WAS RECEIVED ON 23/OCT/2020
     Route: 041
     Dates: start: 20200828
  3. BEVACIZUMAB. [Suspect]
     Active Substance: BEVACIZUMAB
     Indication: NON-SMALL CELL LUNG CANCER
     Dosage: TOTAL DOSE ADMINISTERING
     Route: 041
     Dates: start: 20200729, end: 20200729
  4. EXCELASE [Concomitant]
     Active Substance: PANCRELIPASE
     Indication: HYPERLIPIDAEMIA
     Route: 048
  5. CARBOPLATIN. [Suspect]
     Active Substance: CARBOPLATIN
     Indication: NON-SMALL CELL LUNG CANCER
     Dosage: AUC5
     Route: 041
     Dates: start: 20200729, end: 20200729
  6. ALIMTA [Suspect]
     Active Substance: PEMETREXED DISODIUM
     Indication: NON-SMALL CELL LUNG CANCER
     Route: 041
     Dates: start: 20200729, end: 20200729
  7. NIFEDIPINE CR [Concomitant]
     Active Substance: NIFEDIPINE
     Indication: HYPERTENSION
     Route: 048
     Dates: start: 20200728
  8. ADALAT CC [Concomitant]
     Active Substance: NIFEDIPINE
     Indication: HYPERTENSION
     Route: 048
     Dates: start: 2020
  9. NEXIUM [Concomitant]
     Active Substance: ESOMEPRAZOLE MAGNESIUM
     Indication: PROPHYLAXIS AGAINST GASTROINTESTINAL ULCER
     Route: 048
  10. RANMARK [Concomitant]
     Active Substance: DENOSUMAB
     Indication: NON-SMALL CELL LUNG CANCER
     Route: 058
     Dates: start: 20181225
  11. ZETIA [Concomitant]
     Active Substance: EZETIMIBE
     Indication: HYPERLIPIDAEMIA
     Route: 048
  12. LIPIDIL [Concomitant]
     Active Substance: FENOFIBRATE
     Indication: HYPERLIPIDAEMIA
     Route: 048
  13. TRAMCET [Concomitant]
     Active Substance: ACETAMINOPHEN\TRAMADOL
     Indication: PAIN
     Route: 048
  14. ATEZOLIZUMAB. [Suspect]
     Active Substance: ATEZOLIZUMAB
     Indication: NON-SMALL CELL LUNG CANCER
     Dosage: TOTAL DOSE ADMINISTERING
     Route: 041
     Dates: start: 20200729, end: 20200729
  15. BEVACIZUMAB. [Suspect]
     Active Substance: BEVACIZUMAB
     Dosage: TOTAL DOSE ADMINISTERING?MOST RECENT DOSE WAS RECEIVED ON 08/JAN/2021
     Route: 041
     Dates: start: 20200828
  16. ALIMTA [Suspect]
     Active Substance: PEMETREXED DISODIUM
     Route: 041
     Dates: start: 20200828
  17. GASMOTIN [Concomitant]
     Active Substance: MOSAPRIDE CITRATE
     Indication: GASTRITIS
     Route: 048
  18. TEPRENONE [Concomitant]
     Active Substance: TEPRENONE
     Indication: PROPHYLAXIS AGAINST GASTROINTESTINAL ULCER
     Dosage: WHEN TAKING LOXOPROFEN
     Route: 048
  19. ATEZOLIZUMAB. [Suspect]
     Active Substance: ATEZOLIZUMAB
     Dosage: TOTAL DOSE ADMINISTERING?MOST RECENT DOSE WAS RECEIVED ON 08/JAN/2021
     Route: 041
     Dates: start: 20200828
  20. DENOTAS [Concomitant]
     Active Substance: CALCIUM CARBONATE\CHOLECALCIFEROL\MAGNESIUM CARBONATE
     Indication: PROPHYLAXIS
     Route: 048
     Dates: start: 20181225

REACTIONS (1)
  - Metastases to meninges [Not Recovered/Not Resolved]

NARRATIVE: CASE EVENT DATE: 202012
